FAERS Safety Report 20378935 (Version 2)
Quarter: 2022Q1

REPORT INFORMATION
  Report Type: Spontaneous
  Country: US (occurrence: US)
  Receive Date: 20220126
  Receipt Date: 20220308
  Transmission Date: 20220423
  Serious: Yes (Hospitalization)
  Sender: FDA-Public Use
  Company Number: US-PFIZER INC-202200074234

PATIENT
  Age: 30 Year
  Sex: Male

DRUGS (1)
  1. NIVESTYM [Suspect]
     Active Substance: FILGRASTIM-AAFI
     Indication: Immune enhancement therapy
     Dosage: UNK(480MCG PER 0.8ML)

REACTIONS (3)
  - Chemotherapy [Unknown]
  - Hiccups [Unknown]
  - Off label use [Unknown]
